FAERS Safety Report 9299254 (Version 3)
Quarter: 2013Q2

REPORT INFORMATION
  Report Type: Spontaneous
  Country: US (occurrence: US)
  Receive Date: 20130520
  Receipt Date: 20130628
  Transmission Date: 20140414
  Serious: Yes (Other)
  Sender: FDA-Public Use
  Company Number: US-BAXTER-2013BAX017653

PATIENT
  Age: 34 Year
  Sex: Male
  Weight: 88.64 kg

DRUGS (7)
  1. GAMMAGARD LIQUID [Suspect]
     Indication: IMMUNODEFICIENCY COMMON VARIABLE
     Route: 042
  2. GAMMAGARD LIQUID [Suspect]
     Route: 042
     Dates: start: 20130402, end: 20130402
  3. GAMMAGARD LIQUID [Suspect]
     Route: 042
     Dates: start: 20130416, end: 20130416
  4. 0.9% SODIUM CHLORIDE INJECTION [Suspect]
     Indication: DEHYDRATION
     Dosage: PRE INFUSION
     Route: 042
     Dates: end: 20130402
  5. 0.9% SODIUM CHLORIDE INJECTION [Suspect]
     Dosage: PRE AND POST INFUSION
     Route: 042
     Dates: start: 201304
  6. MEGACE [Concomitant]
     Indication: PRODUCT USED FOR UNKNOWN INDICATION
     Route: 065
  7. HYDROCORTISONE [Concomitant]
     Indication: ADRENAL INSUFFICIENCY
     Route: 065

REACTIONS (9)
  - Meningitis aseptic [Recovered/Resolved]
  - Back pain [Recovered/Resolved]
  - Headache [Recovered/Resolved]
  - Neck pain [Recovered/Resolved]
  - Feeling abnormal [Recovered/Resolved]
  - Muscle spasms [Recovered/Resolved]
  - Pain in extremity [Recovered/Resolved]
  - Lung infection [Recovered/Resolved]
  - Nasopharyngitis [Recovered/Resolved]
